FAERS Safety Report 26052705 (Version 3)
Quarter: 2025Q4

REPORT INFORMATION
  Report Type: Spontaneous
  Country: CN (occurrence: CN)
  Receive Date: 20251117
  Receipt Date: 20251202
  Transmission Date: 20260119
  Serious: Yes (Hospitalization)
  Sender: TEVA
  Company Number: CN-TEVA-VS-3392850

PATIENT
  Age: 78 Year
  Sex: Male

DRUGS (7)
  1. BENDAMUSTINE [Suspect]
     Active Substance: BENDAMUSTINE
     Indication: Lymphoplasmacytoid lymphoma/immunocytoma
     Dosage: ON DAYS 3-4
     Route: 065
  2. DOXAZOSIN [Concomitant]
     Active Substance: DOXAZOSIN MESYLATE
     Indication: Urinary retention
     Route: 065
  3. NIFEDIPINE [Concomitant]
     Active Substance: NIFEDIPINE
     Indication: Hypertension
     Route: 065
  4. IRBESARTAN [Concomitant]
     Active Substance: IRBESARTAN
     Indication: Hypertension
     Route: 065
  5. DEXAMETHASONE ACETATE [Concomitant]
     Active Substance: DEXAMETHASONE ACETATE
     Indication: Product used for unknown indication
     Route: 065
  6. RITUXIMAB [Suspect]
     Active Substance: RITUXIMAB
     Indication: Lymphoplasmacytoid lymphoma/immunocytoma
     Dosage: ON DAY 2
     Route: 065
  7. RITUXIMAB [Suspect]
     Active Substance: RITUXIMAB
     Indication: Lymphoplasmacytoid lymphoma/immunocytoma
     Dosage: ON DAY 1
     Route: 065

REACTIONS (8)
  - Myelosuppression [Recovering/Resolving]
  - Drug intolerance [Unknown]
  - Infusion related reaction [Recovering/Resolving]
  - Toxicity to various agents [Recovering/Resolving]
  - Febrile neutropenia [Recovering/Resolving]
  - Tachycardia [Recovering/Resolving]
  - Atrial fibrillation [Recovering/Resolving]
  - Hyperhidrosis [Recovering/Resolving]
